FAERS Safety Report 16981144 (Version 1)
Quarter: 2019Q4

REPORT INFORMATION
  Report Type: Spontaneous
  Country: FR (occurrence: FR)
  Receive Date: 20191031
  Receipt Date: 20191031
  Transmission Date: 20200122
  Serious: Yes (Hospitalization)
  Sender: FDA-Public Use
  Company Number: FR-009507513-1910FRA014609

PATIENT
  Age: 3 Year
  Sex: Female
  Weight: 18.3 kg

DRUGS (2)
  1. CELESTENE (BETAMETHASONE) [Suspect]
     Active Substance: BETAMETHASONE
     Indication: LARYNGITIS VIRAL
     Dosage: UNK
     Route: 048
     Dates: start: 201909, end: 2019
  2. BRONCHOKOD [Suspect]
     Active Substance: CARBOCYSTEINE
     Indication: LARYNGITIS VIRAL
     Dosage: UNK
     Route: 048
     Dates: start: 201909, end: 20190927

REACTIONS (1)
  - Partial seizures [Recovered/Resolved]

NARRATIVE: CASE EVENT DATE: 20190926
